FAERS Safety Report 5989025-2 (Version None)
Quarter: 2008Q4

REPORT INFORMATION
  Report Type: 
  Country: None (occurrence: None)
  Receive Date: 20081210
  Receipt Date: 20081208
  Transmission Date: 20090506
  Serious: Yes (Life-Threatening, Hospitalization)
  Sender: FDA-Public Use
  Company Number: B0548381A

PATIENT
  Age: 77 Year
  Sex: Female
  Weight: 82 kg

DRUGS (5)
  1. FLUTICASONE PROPIONATE [Suspect]
     Indication: ASTHMA
     Dosage: 250MCG PER DAY
     Route: 055
     Dates: start: 20081105, end: 20081107
  2. FORADIL [Suspect]
     Indication: ASTHMA
     Dosage: 36MCG PER DAY
     Route: 055
     Dates: start: 20081105, end: 20081107
  3. ASPIRIN [Concomitant]
  4. INSTENON [Concomitant]
  5. PRAMIRACETAM [Concomitant]

REACTIONS (2)
  - CEREBRAL HAEMORRHAGE [None]
  - MUSCULAR WEAKNESS [None]
